FAERS Safety Report 5458697-3 (Version None)
Quarter: 2007Q3

REPORT INFORMATION
  Report Type: 
  Country: None (occurrence: None)
  Receive Date: 20070919
  Receipt Date: 20070417
  Transmission Date: 20080115
  Serious: No
  Sender: FDA-Public Use
  Company Number: US-ASTRAZENECA-2007UW07561

PATIENT
  Age: 47 Year
  Sex: Female
  Weight: 66.2 kg

DRUGS (9)
  1. SEROQUEL [Suspect]
     Route: 048
     Dates: start: 20060401, end: 20070401
  2. PRILOSEC OTC [Concomitant]
     Dosage: TWO CAPS
  3. CALCIUM [Concomitant]
  4. NEURONTIN [Concomitant]
  5. EFFEXOR [Concomitant]
  6. ENALAPRIL MALEATE [Concomitant]
  7. LEVOTHYROXINE SODIUM [Concomitant]
  8. LIPITOR [Concomitant]
  9. ASPIRIN [Concomitant]

REACTIONS (3)
  - BLOOD GLUCOSE INCREASED [None]
  - ILL-DEFINED DISORDER [None]
  - WEIGHT INCREASED [None]
